FAERS Safety Report 10247088 (Version 1)
Quarter: 2014Q2

REPORT INFORMATION
  Report Type: Spontaneous
  Country: US (occurrence: None)
  Receive Date: 20140617
  Receipt Date: 20140617
  Transmission Date: 20141212
  Serious: No
  Sender: FDA-Public Use
  Company Number: None

PATIENT
  Age: 48 Year
  Sex: Male

DRUGS (2)
  1. AMITRYPTILINE [Suspect]
     Indication: DEPRESSION
     Route: 048
     Dates: start: 20140519
  2. METHYLPHENIDATE [Concomitant]

REACTIONS (2)
  - Convulsion [None]
  - Epilepsy [None]
